FAERS Safety Report 10402138 (Version 1)
Quarter: 2014Q3

REPORT INFORMATION
  Report Type: Spontaneous
  Country: BR (occurrence: BR)
  Receive Date: 20140822
  Receipt Date: 20140822
  Transmission Date: 20150326
  Serious: Yes (Other)
  Sender: FDA-Public Use
  Company Number: BR-ABBVIE-14P-020-1275259-00

PATIENT
  Age: 69 Year
  Sex: Male
  Weight: 82.2 kg

DRUGS (2)
  1. DEPAKOTE ER [Suspect]
     Active Substance: DIVALPROEX SODIUM
     Indication: DEPRESSION
     Dosage: AT 08:00PM; DAILY DOSE: 250MG
     Route: 048
     Dates: start: 2012
  2. OLCADIL [Concomitant]
     Active Substance: CLOXAZOLAM
     Indication: SLEEP DISORDER THERAPY
     Dosage: HALF TABLET IN THE MORNING/ 1 TABLET AT 10:00PM. DAILY DOSE 3 MILLIGRAM
     Route: 048
     Dates: start: 1999

REACTIONS (6)
  - Clavicle fracture [Recovered/Resolved]
  - Therapeutic response changed [Unknown]
  - Vitamin D deficiency [Unknown]
  - Bone decalcification [Unknown]
  - Road traffic accident [Unknown]
  - Off label use [Unknown]

NARRATIVE: CASE EVENT DATE: 2012
